FAERS Safety Report 7239134-5 (Version None)
Quarter: 2011Q1

REPORT INFORMATION
  Report Type: 
  Country: None (occurrence: None)
  Receive Date: 20110121
  Receipt Date: 20110111
  Transmission Date: 20110831
  Serious: Yes (Hospitalization, Other)
  Sender: FDA-Public Use
  Company Number: US-CELGENEUS-163-21880-10122001

PATIENT
  Sex: Male

DRUGS (8)
  1. DIGOXIN [Concomitant]
     Route: 048
  2. MULTAQ [Concomitant]
     Route: 065
  3. COUMADIN [Concomitant]
     Route: 048
  4. SOTALOL HCL [Concomitant]
     Route: 065
  5. ASA [Concomitant]
     Route: 048
  6. REVLIMID [Suspect]
     Indication: MULTIPLE MYELOMA
     Route: 048
     Dates: start: 20101022, end: 20101217
  7. PROMETHAZINE [Concomitant]
     Route: 065
  8. ALLOPURINOL [Concomitant]
     Route: 048

REACTIONS (1)
  - ATRIAL FLUTTER [None]
